FAERS Safety Report 15170794 (Version 1)
Quarter: 2018Q3

REPORT INFORMATION
  Report Type: Spontaneous
  Country: US (occurrence: US)
  Receive Date: 20180622
  Receipt Date: 20180622
  Transmission Date: 20181010
  Serious: Yes (Hospitalization)
  Sender: FDA-Public Use
  Company Number: None

PATIENT
  Age: 52 Year
  Sex: Male

DRUGS (1)
  1. LENALIDOMIDE [Suspect]
     Active Substance: LENALIDOMIDE
     Indication: PLASMA CELL MYELOMA
     Route: 048
     Dates: start: 20180208, end: 20180305

REACTIONS (4)
  - Stevens-Johnson syndrome [None]
  - Respiratory depression [None]
  - Angina pectoris [None]
  - Diarrhoea [None]

NARRATIVE: CASE EVENT DATE: 20180228
